FAERS Safety Report 12554531 (Version 1)
Quarter: 2016Q3

REPORT INFORMATION
  Report Type: Spontaneous
  Country: US (occurrence: US)
  Receive Date: 20160713
  Receipt Date: 20160713
  Transmission Date: 20161109
  Serious: No
  Sender: FDA-Public Use
  Company Number: US-ROCHE-1703093

PATIENT
  Sex: Female
  Weight: 54.43 kg

DRUGS (2)
  1. BONVIVA [Suspect]
     Active Substance: IBANDRONATE SODIUM
     Indication: OSTEOPOROSIS
     Route: 065
  2. CENTRUM WOMEN UNDER 50 [Suspect]
     Active Substance: VITAMINS
     Indication: OSTEOPOROSIS
     Route: 065

REACTIONS (3)
  - Malaise [Unknown]
  - Back pain [Not Recovered/Not Resolved]
  - Osteoporosis [Not Recovered/Not Resolved]
